FAERS Safety Report 6546344-9 (Version None)
Quarter: 2010Q1

REPORT INFORMATION
  Report Type: 
  Country: None (occurrence: None)
  Receive Date: 20100115
  Receipt Date: 20091229
  Transmission Date: 20100710
  Serious: No
  Sender: FDA-Public Use
  Company Number: 2009-00918

PATIENT
  Age: 86 Year
  Sex: Female
  Weight: 72.5755 kg

DRUGS (9)
  1. COLD REMEDY NASAL GEL [Suspect]
     Dosage: Q 3 HRS - ^COUPLE DAYS^, 2 YEARS AGO- ^COUPLE DAYS^
  2. DIOVAN [Concomitant]
  3. LEVOTHYROXINE SODIUM [Concomitant]
  4. ASPIRIN [Concomitant]
  5. CO Q 10 [Concomitant]
  6. FISH OIL [Concomitant]
  7. MULTI-VITAMIN [Concomitant]
  8. ADVAIR DISKUS 100/50 [Concomitant]
  9. SIMVASTATIN [Concomitant]

REACTIONS (1)
  - ANOSMIA [None]
